FAERS Safety Report 7644277-8 (Version None)
Quarter: 2011Q3

REPORT INFORMATION
  Report Type: 
  Country: None (occurrence: None)
  Receive Date: 20110729
  Receipt Date: 20110725
  Transmission Date: 20111222
  Serious: Yes (Death, Other)
  Sender: FDA-Public Use
  Company Number: PHHY2011BR67130

PATIENT
  Age: 52 Year
  Sex: Female

DRUGS (3)
  1. ONBREZ [Suspect]
     Indication: ASTHMA
     Dosage: 150 MG, QD
     Dates: start: 20110713
  2. SPIRIVA [Concomitant]
  3. FORMOTEROL FUMARATE [Suspect]
     Indication: ASTHMA
     Dosage: UNK UKN, BID

REACTIONS (3)
  - DEATH [None]
  - ARRHYTHMIA [None]
  - CARDIAC FIBRILLATION [None]
